FAERS Safety Report 24875087 (Version 1)
Quarter: 2025Q1

REPORT INFORMATION
  Report Type: Spontaneous
  Country: PL (occurrence: PL)
  Receive Date: 20250122
  Receipt Date: 20250122
  Transmission Date: 20250409
  Serious: Yes (Other)
  Sender: ABBVIE
  Company Number: PL-ABBVIE-6094377

PATIENT
  Age: 16 Year
  Sex: Male

DRUGS (5)
  1. VENETOCLAX [Suspect]
     Active Substance: VENETOCLAX
     Indication: T-cell type acute leukaemia
     Route: 048
     Dates: start: 20241212
  2. VENETOCLAX [Suspect]
     Active Substance: VENETOCLAX
     Indication: T-cell type acute leukaemia
     Route: 048
     Dates: start: 202412, end: 20241222
  3. ETOPOSIDE [Concomitant]
     Active Substance: ETOPOSIDE
     Indication: T-cell type acute leukaemia
     Dates: end: 20241222
  4. CYCLOPHOSPHAMIDE [Concomitant]
     Active Substance: CYCLOPHOSPHAMIDE
     Indication: T-cell type acute leukaemia
     Dates: end: 20241222
  5. IMATINIB [Concomitant]
     Active Substance: IMATINIB
     Indication: T-cell type acute leukaemia
     Dates: end: 20241222

REACTIONS (2)
  - General physical health deterioration [Unknown]
  - Off label use [Unknown]

NARRATIVE: CASE EVENT DATE: 20241212
